FAERS Safety Report 23703039 (Version 1)
Quarter: 2024Q2

REPORT INFORMATION
  Report Type: Spontaneous
  Country: RU (occurrence: None)
  Receive Date: 20240403
  Receipt Date: 20240403
  Transmission Date: 20240716
  Serious: Yes (Other)
  Sender: FDA-Public Use
  Company Number: 2024A077521

PATIENT
  Age: 57 Year
  Sex: Male

DRUGS (6)
  1. CRESTOR [Suspect]
     Active Substance: ROSUVASTATIN CALCIUM
     Indication: Blood cholesterol increased
     Route: 048
  2. SPIRONOLACTONE [Concomitant]
     Active Substance: SPIRONOLACTONE
  3. PERINDOPRIL [Concomitant]
     Active Substance: PERINDOPRIL
  4. BRILINTA [Concomitant]
     Active Substance: TICAGRELOR
     Indication: Acute coronary syndrome
     Dosage: (PRESCRIBED TO THE PATIENT AFTER THE LAST STENTING)
     Route: 048
  5. BRILINTA [Concomitant]
     Active Substance: TICAGRELOR
     Indication: Angina unstable
     Dosage: (PRESCRIBED TO THE PATIENT AFTER THE LAST STENTING)
     Route: 048
  6. ASPIRIN [Concomitant]
     Active Substance: ASPIRIN

REACTIONS (1)
  - Coronary artery restenosis [Recovered/Resolved]
